FAERS Safety Report 10682603 (Version 1)
Quarter: 2014Q4

REPORT INFORMATION
  Report Type: Spontaneous
  Country: US (occurrence: None)
  Receive Date: 20141224
  Receipt Date: 20141224
  Transmission Date: 20150529
  Serious: Yes (Life-Threatening, Other)
  Sender: FDA-Public Use
  Company Number: FK201406349

PATIENT
  Age: 76 Year
  Sex: Female

DRUGS (5)
  1. MIDAZOLAM [Concomitant]
     Active Substance: MIDAZOLAM\MIDAZOLAM HYDROCHLORIDE
  2. LIDOCAINE (MANUFACTURER UNKNOWN) (LIDOCAINE) (LIDOCAINE) [Suspect]
     Active Substance: LIDOCAINE
     Indication: PRODUCT USED FOR UNKNOWN INDICATION
     Route: 042
  3. ROPIVACAINE [Suspect]
     Active Substance: ROPIVACAINE
     Indication: GENERAL ANAESTHESIA
     Route: 042
  4. FENTANYL. [Concomitant]
     Active Substance: FENTANYL
  5. ATENOLOL. [Concomitant]
     Active Substance: ATENOLOL

REACTIONS (2)
  - Toxicity to various agents [None]
  - Generalised tonic-clonic seizure [None]
